FAERS Safety Report 5743769-6 (Version None)
Quarter: 2008Q2

REPORT INFORMATION
  Report Type: 
  Country: None (occurrence: None)
  Receive Date: 20080516
  Receipt Date: 20080506
  Transmission Date: 20081010
  Serious: Yes (Other)
  Sender: FDA-Public Use
  Company Number: ADE2008-0195

PATIENT
  Age: 86 Year
  Sex: Female
  Weight: 39 kg

DRUGS (11)
  1. BISOPROLOL FUMARATE [Suspect]
     Indication: HYPERTENSION
     Dosage: 10MG QD
     Dates: start: 20070701, end: 20071201
  2. BISOPROLOL FUMARATE [Suspect]
     Indication: HYPERTENSION
     Dosage: 5 MG QD
     Dates: start: 20061201, end: 20071201
  3. ADACL (CALCIUM CARBONATE) [Concomitant]
  4. ASPIRIN [Concomitant]
  5. DIOVAN [Concomitant]
  6. FYBOGEL (ISPAGHULA HUSK) [Concomitant]
  7. GTN (GLYCERYL TRINITRATE) [Concomitant]
  8. ISOTARD XL [Concomitant]
  9. LATANOPROST [Concomitant]
  10. METHYLDOPA [Concomitant]
  11. SENNA [Concomitant]

REACTIONS (4)
  - FALL [None]
  - HALLUCINATION [None]
  - HEAD INJURY [None]
  - LOSS OF CONSCIOUSNESS [None]
